FAERS Safety Report 20646252 (Version 5)
Quarter: 2022Q3

REPORT INFORMATION
  Report Type: Report from Study
  Country: US (occurrence: US)
  Receive Date: 20220329
  Receipt Date: 20220708
  Transmission Date: 20221026
  Serious: Yes (Other)
  Sender: FDA-Public Use
  Company Number: US-ABBVIE-22K-163-4293989-00

PATIENT
  Age: 49 Year
  Sex: Female

DRUGS (6)
  1. HUMIRA [Suspect]
     Active Substance: ADALIMUMAB
     Indication: Colitis ulcerative
     Dosage: DAY 1- CITRATE FREE
     Route: 058
     Dates: start: 202104, end: 202104
  2. HUMIRA [Suspect]
     Active Substance: ADALIMUMAB
     Indication: Crohn^s disease
     Dosage: DAY 15
     Route: 058
     Dates: start: 2021, end: 2021
  3. HUMIRA [Suspect]
     Active Substance: ADALIMUMAB
     Route: 058
     Dates: start: 202105
  4. HUMIRA [Suspect]
     Active Substance: ADALIMUMAB
     Route: 058
  5. MESALAMINE [Concomitant]
     Active Substance: MESALAMINE
     Indication: Crohn^s disease
  6. AMINOSALICYLATE CALCIUM [Concomitant]
     Active Substance: AMINOSALICYLATE CALCIUM
     Indication: Crohn^s disease

REACTIONS (16)
  - Anal fistula [Unknown]
  - Anaemia [Unknown]
  - Platelet count increased [Unknown]
  - Skin discolouration [Recovering/Resolving]
  - COVID-19 [Unknown]
  - COVID-19 [Recovered/Resolved]
  - Malaise [Unknown]
  - Palpitations [Unknown]
  - White blood cell count increased [Unknown]
  - Hyperhidrosis [Unknown]
  - Dehydration [Unknown]
  - Unevaluable event [Unknown]
  - Crohn^s disease [Unknown]
  - Alopecia [Unknown]
  - Drug ineffective [Unknown]
  - Enterococcal infection [Unknown]

NARRATIVE: CASE EVENT DATE: 20200601
